FAERS Safety Report 13184781 (Version 3)
Quarter: 2017Q1

REPORT INFORMATION
  Report Type: Spontaneous
  Country: US (occurrence: US)
  Receive Date: 20170203
  Receipt Date: 20170220
  Transmission Date: 20170428
  Serious: Yes (Other)
  Sender: FDA-Public Use
  Company Number: US-009507513-1702USA000471

PATIENT
  Age: 23 Year
  Sex: Female
  Weight: 85.71 kg

DRUGS (1)
  1. NEXPLANON [Suspect]
     Active Substance: ETONOGESTREL
     Indication: CONTRACEPTION
     Dosage: 1 DF, UNK
     Route: 059
     Dates: start: 201310

REACTIONS (9)
  - Device difficult to use [Not Recovered/Not Resolved]
  - Device expulsion [Not Recovered/Not Resolved]
  - Migration of implanted drug [Not Recovered/Not Resolved]
  - Pregnancy on contraceptive [Unknown]
  - Drug dose omission [Unknown]
  - Device deployment issue [Not Recovered/Not Resolved]
  - Unintended pregnancy [Unknown]
  - Complication associated with device [Not Recovered/Not Resolved]
  - Incorrect drug administration duration [Unknown]

NARRATIVE: CASE EVENT DATE: 201310
